FAERS Safety Report 20457266 (Version 1)
Quarter: 2022Q1

REPORT INFORMATION
  Report Type: Spontaneous
  Country: US (occurrence: US)
  Receive Date: 20220210
  Receipt Date: 20220210
  Transmission Date: 20220424
  Serious: No
  Sender: FDA-Public Use
  Company Number: US-DSJP-DSU-2022-104852

PATIENT
  Sex: Female

DRUGS (1)
  1. ENHERTU [Suspect]
     Active Substance: FAM-TRASTUZUMAB DERUXTECAN-NXKI
     Indication: Gastrointestinal carcinoma
     Dosage: UNK
     Route: 042

REACTIONS (2)
  - Nausea [Unknown]
  - Vomiting [Unknown]
